FAERS Safety Report 8333780-3 (Version None)
Quarter: 2012Q2

REPORT INFORMATION
  Report Type: 
  Country: None (occurrence: None)
  Receive Date: 20120503
  Receipt Date: 20120423
  Transmission Date: 20120825
  Serious: Yes (Hospitalization, Other)
  Sender: FDA-Public Use
  Company Number: US-ELI_LILLY_AND_COMPANY-US201204008269

PATIENT
  Age: 53 Year
  Sex: Male

DRUGS (14)
  1. METOPROLOL TARTRATE [Concomitant]
     Indication: BLOOD PRESSURE
  2. FORTEO [Suspect]
     Indication: OSTEOPOROSIS
     Dosage: 20 UG, QD
     Dates: start: 20120101, end: 20120416
  3. HIDROCLOROTIAZIDE [Concomitant]
     Indication: DIURETIC THERAPY
  4. VITAMIN D [Concomitant]
  5. FORTEO [Suspect]
     Dosage: 20 UG, QD
     Dates: start: 20120423
  6. CELEBREX [Concomitant]
  7. PERCOCET [Concomitant]
  8. CYMBALTA [Suspect]
     Indication: DEPRESSION
     Dosage: 60 MG, QD
  9. GABAPENTIN [Concomitant]
     Indication: NEURALGIA
  10. LIPITOR [Concomitant]
  11. ASPIRIN [Concomitant]
     Dosage: 81 MG, UNK
  12. MAGNESIUM W/ZINC [Concomitant]
  13. VITAMIN TAB [Concomitant]
  14. CALCIUM [Concomitant]

REACTIONS (2)
  - GAIT DISTURBANCE [None]
  - HIP FRACTURE [None]
